FAERS Safety Report 10216732 (Version 2)
Quarter: 2014Q2

REPORT INFORMATION
  Report Type: Spontaneous
  Country: BR (occurrence: BR)
  Receive Date: 20140604
  Receipt Date: 20140604
  Transmission Date: 20141212
  Serious: Yes (Other)
  Sender: FDA-Public Use
  Company Number: BR-ASTRAZENECA-2013SE92564

PATIENT
  Age: 785 Month
  Sex: Female
  Weight: 77 kg

DRUGS (9)
  1. ATENOLOL [Suspect]
     Indication: HYPERTENSION
     Route: 048
     Dates: end: 20131203
  2. ATENOLOL [Suspect]
     Indication: HYPERTENSION
     Route: 048
     Dates: start: 20140526
  3. SELOZOK [Suspect]
     Indication: HYPERTENSION
     Route: 048
     Dates: start: 20131204, end: 20131204
  4. SELOZOK [Suspect]
     Indication: HEART RATE INCREASED
     Route: 048
     Dates: start: 20131204, end: 20131204
  5. SELOZOK [Suspect]
     Indication: HYPERTENSION
     Route: 048
     Dates: start: 201404
  6. SELOZOK [Suspect]
     Indication: HEART RATE INCREASED
     Route: 048
     Dates: start: 201404
  7. SYNTHROID [Concomitant]
     Indication: THYROIDECTOMY
     Route: 048
  8. SINERGEN [Concomitant]
     Indication: CARDIAC DISORDER
     Dosage: 5+10 MG DAILY
     Route: 048
  9. APRAZ [Concomitant]
     Indication: ANXIETY
     Route: 048

REACTIONS (8)
  - Blood pressure increased [Recovered/Resolved]
  - Heart rate increased [Not Recovered/Not Resolved]
  - Abdominal distension [Not Recovered/Not Resolved]
  - Abdominal pain [Not Recovered/Not Resolved]
  - Peripheral coldness [Not Recovered/Not Resolved]
  - Nausea [Not Recovered/Not Resolved]
  - Off label use [Not Recovered/Not Resolved]
  - Intentional product misuse [Unknown]
